FAERS Safety Report 6719901-4 (Version None)
Quarter: 2010Q2

REPORT INFORMATION
  Report Type: 
  Country: None (occurrence: None)
  Receive Date: 20100507
  Receipt Date: 20100429
  Transmission Date: 20101027
  Serious: Yes (Hospitalization)
  Sender: FDA-Public Use
  Company Number: 009847

PATIENT

DRUGS (1)
  1. KEPPRA [Suspect]
     Dosage: 1250 MG , 1500 MG

REACTIONS (1)
  - BLINDNESS [None]
